FAERS Safety Report 20237239 (Version 1)
Quarter: 2021Q4

REPORT INFORMATION
  Report Type: Report from Study
  Country: US (occurrence: None)
  Receive Date: 20211228
  Receipt Date: 20211228
  Transmission Date: 20220303
  Serious: Yes (Hospitalization)
  Sender: FDA-Public Use
  Company Number: 2021A896031

PATIENT
  Age: 26929 Day
  Sex: Female

DRUGS (1)
  1. TEZSPIRE [Suspect]
     Active Substance: TEZEPELUMAB-EKKO
     Route: 058

REACTIONS (3)
  - Asthma [Unknown]
  - Fall [Unknown]
  - Malaise [Unknown]

NARRATIVE: CASE EVENT DATE: 20151110
